FAERS Safety Report 8597901-X (Version None)
Quarter: 2012Q3

REPORT INFORMATION
  Report Type: 
  Country: None (occurrence: None)
  Receive Date: 20120802
  Receipt Date: 20120718
  Transmission Date: 20120928
  Serious: Yes (Hospitalization, Other)
  Sender: FDA-Public Use
  Company Number: JPI-P-019947

PATIENT
  Age: 58 Year
  Sex: Female
  Weight: 90.7194 kg

DRUGS (29)
  1. XYREM [Suspect]
     Indication: NARCOLEPSY
     Dosage: 9 GM (4.5 GM, 2 IN 1 D) ORAL
     Route: 048
     Dates: start: 20071113
  2. TOPIRAMATE [Concomitant]
  3. FLAVOCOXID [Concomitant]
  4. MUPIROCIN [Concomitant]
  5. QUINAPRIL [Concomitant]
  6. CYCLOBENZAPRINE [Concomitant]
  7. OMEPRAZOLE [Concomitant]
  8. ASPIRIN [Concomitant]
  9. PROMETHAZINE [Concomitant]
  10. LEVOTHYROXINE SODIUM [Concomitant]
  11. CENTRUM SILVER VITAMIN [Concomitant]
  12. CAVIMELINE HYDROCHLORIDE [Concomitant]
  13. FLUCONAZOLE [Concomitant]
  14. HYDROXYCHLOROQUINE SULFATE [Concomitant]
  15. ESCITALOPRAM OXALATE [Concomitant]
  16. EXENATIDE [Concomitant]
  17. VERAPAMIL [Concomitant]
  18. AMITRIPTYLINE HCL [Concomitant]
  19. LUBIPROSTONE [Concomitant]
  20. POTASSIUM CHLORIDE [Concomitant]
  21. RISEDRONATE SODIUM [Concomitant]
  22. DICLOFENAC SODIUM [Concomitant]
  23. M.V.I. [Concomitant]
  24. GLIPIZIDE [Concomitant]
  25. ALPRAZOLAM [Concomitant]
  26. CYANOCOBALAMIN [Concomitant]
  27. PRAVASTATIN [Concomitant]
  28. NABILONE [Concomitant]
  29. HYDROCODONE BITARTRATE AND ACETAMINOPHEN [Concomitant]

REACTIONS (4)
  - SINUSITIS [None]
  - CORONARY ARTERY DISEASE [None]
  - ELECTROCARDIOGRAM ABNORMAL [None]
  - FATIGUE [None]
